FAERS Safety Report 5737082-0 (Version None)
Quarter: 2008Q2

REPORT INFORMATION
  Report Type: 
  Country: None (occurrence: None)
  Receive Date: 20080513
  Receipt Date: 20080513
  Transmission Date: 20081010
  Serious: Yes (Other)
  Sender: FDA-Public Use
  Company Number: None

PATIENT
  Age: 47 Year
  Sex: Female
  Weight: 70.3075 kg

DRUGS (1)
  1. DIGITEK 0.25 MG MYLAN BERTEK [Suspect]
     Indication: HEART RATE INCREASED
     Dosage: 1 TABLET 1X/DAY PO
     Route: 048
     Dates: start: 20080412, end: 20080506

REACTIONS (10)
  - ACTIVITIES OF DAILY LIVING IMPAIRED [None]
  - DIZZINESS [None]
  - GASTROOESOPHAGEAL REFLUX DISEASE [None]
  - HEART RATE DECREASED [None]
  - HYPOTENSION [None]
  - IMPAIRED DRIVING ABILITY [None]
  - NAUSEA [None]
  - OVERDOSE [None]
  - SENSATION OF HEAVINESS [None]
  - SINUS TACHYCARDIA [None]
